FAERS Safety Report 6100245-9 (Version None)
Quarter: 2009Q1

REPORT INFORMATION
  Report Type: 
  Country: None (occurrence: None)
  Receive Date: 20090226
  Receipt Date: 20090217
  Transmission Date: 20090719
  Serious: Yes (Hospitalization)
  Sender: FDA-Public Use
  Company Number: 2009-191673-NL

PATIENT
  Age: 74 Year
  Sex: Female

DRUGS (9)
  1. MIRTAZAPINE [Suspect]
     Dosage: DF
     Dates: start: 20080101, end: 20081117
  2. INFLUENZA VIRUS VACCINE MONOVALENT [Suspect]
     Dosage: 1 DF
     Dates: start: 20080103
  3. VALPROATE SODIUM [Suspect]
     Dosage: DF
     Dates: start: 20080101, end: 20081117
  4. VENLAFAXINE HYDROCHLORIDE [Concomitant]
  5. DALMADORM [Concomitant]
  6. LORAZEPAM [Concomitant]
  7. ATORVASTATIN CALCIUM [Concomitant]
  8. CITALOPRAM HYDROBROMIDE [Concomitant]
  9. LEVETIRACETAM [Concomitant]

REACTIONS (1)
  - MYELODYSPLASTIC SYNDROME [None]
